FAERS Safety Report 4563787-3 (Version None)
Quarter: 2005Q1

REPORT INFORMATION
  Report Type: 
  Country: None (occurrence: None)
  Receive Date: 20050128
  Receipt Date: 20041102
  Transmission Date: 20050727
  Serious: No
  Sender: FDA-Public Use
  Company Number: US-GLAXOSMITHKLINE-A0532246A

PATIENT
  Age: 70 Year
  Sex: Male

DRUGS (9)
  1. MEPRON [Suspect]
     Indication: PROPHYLAXIS
     Dosage: 750MG PER DAY
     Route: 048
     Dates: start: 20040928
  2. COUMADIN [Suspect]
  3. GLUCOTROL [Concomitant]
  4. ATIVAN [Concomitant]
  5. AVANDIA [Concomitant]
  6. DARVOCET [Concomitant]
  7. PREVACID [Concomitant]
  8. LIPITOR [Concomitant]
  9. ALTACE [Concomitant]

REACTIONS (1)
  - DRUG INTERACTION [None]
